FAERS Safety Report 14980435 (Version 1)
Quarter: 2018Q2

REPORT INFORMATION
  Report Type: Report from Study
  Country: US (occurrence: US)
  Receive Date: 20180606
  Receipt Date: 20180606
  Transmission Date: 20180711
  Serious: Yes (Hospitalization, Other)
  Sender: FDA-Public Use
  Company Number: PHEH2018US021376

PATIENT
  Age: 23 Year
  Sex: Female

DRUGS (1)
  1. EXTAVIA [Suspect]
     Active Substance: INTERFERON BETA-1B
     Indication: MULTIPLE SCLEROSIS
     Dosage: 0.25 ML (0.0625 MG), QOD
     Route: 058
     Dates: start: 20180531

REACTIONS (3)
  - Device leakage [Unknown]
  - Loss of consciousness [Unknown]
  - Palpitations [Unknown]

NARRATIVE: CASE EVENT DATE: 20180531
